FAERS Safety Report 7119733-1 (Version None)
Quarter: 2010Q4

REPORT INFORMATION
  Report Type: 
  Country: None (occurrence: None)
  Receive Date: 20101123
  Receipt Date: 20100809
  Transmission Date: 20110411
  Serious: No
  Sender: FDA-Public Use
  Company Number: US-BRISTOL-MYERS SQUIBB COMPANY-15183080

PATIENT
  Sex: Female

DRUGS (2)
  1. ONGLYZA [Suspect]
     Dosage: DOSAGE:STARTED 2WEEKS AGO.
  2. ACTOS [Concomitant]

REACTIONS (2)
  - DRUG INEFFECTIVE [None]
  - PALPITATIONS [None]
